FAERS Safety Report 8922956 (Version 5)
Quarter: 2013Q3

REPORT INFORMATION
  Report Type: Spontaneous
  Country: JP (occurrence: JP)
  Receive Date: 20121123
  Receipt Date: 20130726
  Transmission Date: 20140515
  Serious: Yes (Other)
  Sender: FDA-Public Use
  Company Number: JP-ABBOTT-12P-087-1010521-00

PATIENT
  Age: 38 Year
  Sex: Female
  Weight: 56 kg

DRUGS (2)
  1. LEUPLIN FOR INJECTION KIT 1.88 [Suspect]
     Indication: UTERINE LEIOMYOMA
     Route: 058
     Dates: start: 20120921, end: 20120921
  2. LEUPLIN FOR INJECTION KIT 1.88 [Suspect]
     Indication: OVARIAN CYST

REACTIONS (1)
  - Ovarian hyperstimulation syndrome [Recovered/Resolved]
